FAERS Safety Report 6040838-0 (Version None)
Quarter: 2009Q1

REPORT INFORMATION
  Report Type: 
  Country: None (occurrence: None)
  Receive Date: 20090116
  Receipt Date: 20080610
  Transmission Date: 20090719
  Serious: No
  Sender: FDA-Public Use
  Company Number: US-BRISTOL-MYERS SQUIBB COMPANY-14222251

PATIENT
  Age: 45 Year
  Sex: Male

DRUGS (1)
  1. ABILIFY [Suspect]
     Dosage: 15MG/DAY FOR 2 MONTHS ABILIFY WAS STOPPED RESTARTED AT DOSE OF 22.5MG/DAY, 9 MONTHS LATER

REACTIONS (2)
  - AKATHISIA [None]
  - DYSKINESIA [None]
